FAERS Safety Report 8383366-X (Version None)
Quarter: 2012Q2

REPORT INFORMATION
  Report Type: 
  Country: None (occurrence: None)
  Receive Date: 20120522
  Receipt Date: 20120507
  Transmission Date: 20120825
  Serious: Yes (Hospitalization, Other)
  Sender: FDA-Public Use
  Company Number: CIP11000561

PATIENT
  Age: 78 Year
  Sex: Female

DRUGS (15)
  1. ALENDRONATE SODIUM [Suspect]
     Indication: OSTEOPOROSIS
     Dosage: 70 MG WEEKLY, ORAL
     Route: 048
     Dates: start: 20080502, end: 20090901
  2. CITRACAL (CALCIUM CITRATE) [Concomitant]
  3. FOSAMAX [Suspect]
     Indication: OSTEOPOROSIS
     Dosage: 70 MG WEEKLY, ORAL
     Route: 048
     Dates: start: 20001207, end: 20021210
  4. TOPROL-XL [Concomitant]
  5. PATANOL [Concomitant]
  6. ACTONEL [Suspect]
     Indication: OSTEOPOROSIS
     Dosage: 35 MG ONCE WEEKLY, ORAL
     Route: 048
     Dates: start: 20021210, end: 20060301
  7. RHINOCORT [Concomitant]
  8. HYDROCODONE BITARTRATE AND ACETAMINOPHEN (HYDROCODONE BITARTRATE, PARA [Concomitant]
  9. FOSAMAX PLUS D [Suspect]
     Indication: OSTEOPOROSIS
     Dosage: 70 MG, 1/WEEK, ORAL
     Route: 048
     Dates: start: 20070316, end: 20080411
  10. LEVOXYL [Concomitant]
  11. AMOXICILLIN [Concomitant]
  12. METHOCARBAMOL [Concomitant]
  13. MULTIVITAMIN (ASCORBIC ACID, CALCIUM PANTOTHENATE, ERGOCALCIFEROL, NIC [Concomitant]
  14. ACTONEL [Suspect]
     Indication: OSTEOPOROSIS
     Dosage: 150 MG, 1/MONTH, ORAL
     Route: 048
     Dates: start: 20100507
  15. ZITHROMAX [Concomitant]

REACTIONS (27)
  - PAIN IN EXTREMITY [None]
  - CONDITION AGGRAVATED [None]
  - BONE FRAGMENTATION [None]
  - PLEURAL EFFUSION [None]
  - WOUND HAEMORRHAGE [None]
  - PROCEDURAL HAEMORRHAGE [None]
  - FEMUR FRACTURE [None]
  - HUMERUS FRACTURE [None]
  - COMMINUTED FRACTURE [None]
  - OBSTRUCTIVE AIRWAYS DISORDER [None]
  - FALL [None]
  - RADIUS FRACTURE [None]
  - CONTUSION [None]
  - OSTEOPOROSIS [None]
  - POST PROCEDURAL PULMONARY EMBOLISM [None]
  - ROAD TRAFFIC ACCIDENT [None]
  - STRESS FRACTURE [None]
  - DRUG INEFFECTIVE [None]
  - LUNG HYPERINFLATION [None]
  - WOUND SECRETION [None]
  - ATELECTASIS [None]
  - ULNA FRACTURE [None]
  - GAIT DISTURBANCE [None]
  - DYSPNOEA [None]
  - PAIN [None]
  - ANAEMIA POSTOPERATIVE [None]
  - FRACTURE DISPLACEMENT [None]
